FAERS Safety Report 6749137-2 (Version None)
Quarter: 2010Q2

REPORT INFORMATION
  Report Type: 
  Country: None (occurrence: None)
  Receive Date: 20100601
  Receipt Date: 20100526
  Transmission Date: 20101027
  Serious: Yes (Other)
  Sender: FDA-Public Use
  Company Number: DE-BAXTER-2010BH014198

PATIENT
  Age: 8 Year
  Sex: Male

DRUGS (1)
  1. FEIBA [Suspect]
     Indication: HAEMARTHROSIS
     Route: 042
     Dates: start: 20100518, end: 20100525

REACTIONS (2)
  - CHEST PAIN [None]
  - DYSPNOEA [None]
